FAERS Safety Report 5607545-7 (Version None)
Quarter: 2008Q1

REPORT INFORMATION
  Report Type: 
  Country: None (occurrence: None)
  Receive Date: 20080130
  Receipt Date: 20080117
  Transmission Date: 20080703
  Serious: Yes (Hospitalization, Other)
  Sender: FDA-Public Use
  Company Number: US-BAYER-200811408NA

PATIENT
  Age: 84 Year
  Sex: Female

DRUGS (5)
  1. CIPRO [Suspect]
     Indication: URINARY TRACT INFECTION
     Route: 048
     Dates: start: 20080109, end: 20080114
  2. NAMENDA [Concomitant]
  3. HIGH BLOOD PRESSURE MEDICATION [Concomitant]
     Indication: HYPERTENSION
  4. POTASSIUM CHLORIDE [Concomitant]
  5. ASPIRIN [Concomitant]

REACTIONS (14)
  - BODY TEMPERATURE FLUCTUATION [None]
  - COORDINATION ABNORMAL [None]
  - DEPRESSED LEVEL OF CONSCIOUSNESS [None]
  - DIZZINESS [None]
  - HAEMORRHAGIC DIATHESIS [None]
  - HEADACHE [None]
  - HYPERHIDROSIS [None]
  - HYPERSOMNIA [None]
  - MOBILITY DECREASED [None]
  - NERVOUS SYSTEM DISORDER [None]
  - SPEECH DISORDER [None]
  - TREMOR [None]
  - UNRESPONSIVE TO STIMULI [None]
  - VISUAL DISTURBANCE [None]
